FAERS Safety Report 5025854-X (Version None)
Quarter: 2006Q2

REPORT INFORMATION
  Report Type: 
  Country: None (occurrence: None)
  Receive Date: 20060614
  Receipt Date: 20060605
  Transmission Date: 20061013
  Serious: Yes (Hospitalization)
  Sender: FDA-Public Use
  Company Number: JP-AVENTIS-200611715JP

PATIENT
  Sex: Male

DRUGS (9)
  1. AMARYL [Suspect]
     Indication: DIABETES MELLITUS
     Route: 048
  2. CIPROXAN [Suspect]
     Route: 048
  3. ACTOS [Concomitant]
     Route: 048
  4. LASIX [Concomitant]
     Route: 048
  5. WARFARIN SODIUM [Concomitant]
     Route: 048
  6. NU-LOTAN [Concomitant]
     Route: 048
  7. LIPITOR [Concomitant]
     Route: 048
  8. VASOLAN [Concomitant]
     Route: 048
  9. ALLOPURINOL [Concomitant]
     Route: 048

REACTIONS (1)
  - HYPOGLYCAEMIC COMA [None]
